FAERS Safety Report 20106775 (Version 2)
Quarter: 2021Q4

REPORT INFORMATION
  Report Type: Spontaneous
  Country: FR (occurrence: FR)
  Receive Date: 20211124
  Receipt Date: 20211130
  Transmission Date: 20220304
  Serious: Yes (Death, Hospitalization, Congenital Anomaly, Other)
  Sender: FDA-Public Use
  Company Number: FR-ABBVIE-21K-056-4173205-00

PATIENT
  Sex: Male

DRUGS (5)
  1. VALPROATE SODIUM [Suspect]
     Active Substance: VALPROATE SODIUM
     Indication: Product used for unknown indication
     Route: 064
  2. LEUCOVORIN CALCIUM [Concomitant]
     Active Substance: LEUCOVORIN CALCIUM
     Indication: Product used for unknown indication
  3. FOLIC ACID [Concomitant]
     Active Substance: FOLIC ACID
     Indication: Product used for unknown indication
  4. LEUCOVORIN CALCIUM [Concomitant]
     Active Substance: LEUCOVORIN CALCIUM
     Indication: Product used for unknown indication
  5. BETAMETHASONE [Concomitant]
     Active Substance: BETAMETHASONE
     Indication: Product used for unknown indication

REACTIONS (15)
  - Cardiopulmonary failure [Fatal]
  - Respiratory distress [Unknown]
  - Ventricular septal defect [Unknown]
  - Dysmorphism [Unknown]
  - Cryptorchism [Unknown]
  - Foetal arrhythmia [Unknown]
  - Ventricular enlargement [Unknown]
  - Hypotonia [Unknown]
  - Poor sucking reflex [Unknown]
  - Intraventricular haemorrhage [Unknown]
  - Gastrooesophageal reflux disease [Unknown]
  - Hypospadias [Unknown]
  - Limb malformation [Unknown]
  - Thrombocytopenia [Unknown]
  - Foetal exposure during pregnancy [Unknown]
